FAERS Safety Report 8290662-3 (Version None)
Quarter: 2012Q2

REPORT INFORMATION
  Report Type: 
  Country: None (occurrence: None)
  Receive Date: 20120413
  Receipt Date: 20120413
  Transmission Date: 20120825
  Serious: Yes (Life-Threatening, Hospitalization, Disabling)
  Sender: FDA-Public Use
  Company Number: None

PATIENT
  Age: 84 Year
  Sex: Male
  Weight: 91.8 kg

DRUGS (4)
  1. ASACOL [Concomitant]
  2. DIGOXIN [Concomitant]
  3. DABIGATRAN 150 MG BID ORAL [Suspect]
     Indication: ATRIAL FIBRILLATION
     Dosage: 150 MG BID ORAL
     Route: 048
  4. DILTIAZEM HCL [Concomitant]

REACTIONS (3)
  - HEMIPARESIS [None]
  - HAEMORRHAGE INTRACRANIAL [None]
  - CONTINUOUS HAEMODIAFILTRATION [None]
